FAERS Safety Report 7171670-2 (Version None)
Quarter: 2010Q4

REPORT INFORMATION
  Report Type: 
  Country: None (occurrence: None)
  Receive Date: 20101217
  Receipt Date: 20100204
  Transmission Date: 20110411
  Serious: No
  Sender: FDA-Public Use
  Company Number: US-AMGEN-KDL390712

PATIENT

DRUGS (6)
  1. ENBREL [Suspect]
     Indication: PRODUCT USED FOR UNKNOWN INDICATION
     Dosage: 50 MG, QWK
     Route: 058
  2. CELECOXIB [Concomitant]
     Dosage: 200 MG, UNK
  3. GABAPENTIN [Concomitant]
     Dosage: 600 MG, UNK
  4. LOTREL [Concomitant]
     Dosage: UNK UNK, UNK
  5. TRAMADOL HCL [Concomitant]
     Dosage: 50 MG, UNK
  6. CEPHALEXIN MONOHYDRATE [Concomitant]
     Dosage: 500 MG, UNK

REACTIONS (1)
  - PSORIASIS [None]
